FAERS Safety Report 15279385 (Version 1)
Quarter: 2018Q3

REPORT INFORMATION
  Report Type: Spontaneous
  Country: US (occurrence: US)
  Receive Date: 20180730
  Receipt Date: 20180730
  Transmission Date: 20181010
  Serious: No
  Sender: FDA-Public Use
  Company Number: None

PATIENT
  Age: 68 Year
  Sex: Male
  Weight: 112.5 kg

DRUGS (2)
  1. ZYTIGA [Suspect]
     Active Substance: ABIRATERONE ACETATE
     Indication: PROSTATE CANCER
     Route: 048
     Dates: start: 20160523, end: 20180730
  2. ZYTIGA [Concomitant]
     Active Substance: ABIRATERONE ACETATE
     Dates: start: 20160523, end: 20180730

REACTIONS (1)
  - Disease progression [None]

NARRATIVE: CASE EVENT DATE: 20180730
